FAERS Safety Report 10927955 (Version 1)
Quarter: 2015Q1

REPORT INFORMATION
  Report Type: Spontaneous
  Country: US (occurrence: None)
  Receive Date: 20150316
  Receipt Date: 20150316
  Transmission Date: 20150721
  Serious: No
  Sender: FDA-Public Use
  Company Number: None

PATIENT
  Age: 5 Year
  Sex: Male

DRUGS (2)
  1. MYCOPHENOLATE [Suspect]
     Active Substance: MYCOPHENOLIC ACID
     Indication: NEPHROTIC SYNDROME
     Route: 048
     Dates: start: 20150224
  2. MYCOPHENOLATE [Suspect]
     Active Substance: MYCOPHENOLIC ACID
     Indication: AUTOIMMUNE DISORDER
     Route: 048
     Dates: start: 20150224

REACTIONS (1)
  - Product taste abnormal [None]

NARRATIVE: CASE EVENT DATE: 20150225
